FAERS Safety Report 4640378-7 (Version None)
Quarter: 2005Q2

REPORT INFORMATION
  Report Type: 
  Country: None (occurrence: None)
  Receive Date: 20050420
  Receipt Date: 20050408
  Transmission Date: 20051028
  Serious: Yes (Hospitalization)
  Sender: FDA-Public Use
  Company Number: US-GLAXOSMITHKLINE-A0553299A

PATIENT
  Age: 80 Year
  Sex: Male
  Weight: 68 kg

DRUGS (10)
  1. ECOTRIN REGULAR STRENGTH TABLETS [Suspect]
     Indication: PROPHYLAXIS
     Route: 048
     Dates: start: 20000101
  2. COREG [Concomitant]
     Indication: CARDIAC DISORDER
     Dosage: 3.125MG TWICE PER DAY
     Route: 048
  3. PLAVIX [Concomitant]
     Indication: DRUG USE FOR UNKNOWN INDICATION
     Dosage: 75MG PER DAY
     Route: 048
  4. IMDUR [Concomitant]
     Indication: DRUG USE FOR UNKNOWN INDICATION
     Dosage: 60MG PER DAY
     Route: 048
  5. TRENTAL [Concomitant]
     Indication: DRUG USE FOR UNKNOWN INDICATION
     Dosage: 400MG THREE TIMES PER DAY
     Route: 048
  6. ALTACE [Concomitant]
     Indication: DRUG USE FOR UNKNOWN INDICATION
     Dosage: 10MG PER DAY
     Route: 048
  7. PRILOSEC [Concomitant]
     Indication: DRUG USE FOR UNKNOWN INDICATION
     Dosage: 40MG PER DAY
     Route: 048
  8. ZOCOR [Concomitant]
     Indication: DRUG USE FOR UNKNOWN INDICATION
     Dosage: 20MG PER DAY
     Route: 048
  9. INSULIN [Concomitant]
     Indication: DIABETES MELLITUS
     Dosage: 20UD PER DAY
     Route: 058
  10. INSULIN [Concomitant]
     Dosage: 23UD PER DAY
     Route: 058

REACTIONS (1)
  - MYOCARDIAL INFARCTION [None]
